FAERS Safety Report 16188341 (Version 1)
Quarter: 2019Q2

REPORT INFORMATION
  Report Type: Spontaneous
  Country: CZ (occurrence: CZ)
  Receive Date: 20190412
  Receipt Date: 20190412
  Transmission Date: 20190711
  Serious: Yes (Other)
  Sender: FDA-Public Use
  Company Number: CZ-GLAXOSMITHKLINE-CZ2019061691

PATIENT
  Age: 64 Year
  Sex: Female

DRUGS (11)
  1. VENTOLIN [Concomitant]
     Active Substance: ALBUTEROL SULFATE
     Indication: PRODUCT USED FOR UNKNOWN INDICATION
     Dosage: UNK
     Route: 065
  2. TAMALIS [Concomitant]
     Indication: PRODUCT USED FOR UNKNOWN INDICATION
     Dosage: UNK, QD
     Route: 065
  3. ESTROFEM (ESTRADIOL) [Concomitant]
     Active Substance: ESTRADIOL
     Indication: PRODUCT USED FOR UNKNOWN INDICATION
     Dosage: UNK
     Route: 065
  4. THEOPLUS [Concomitant]
     Active Substance: THEOPHYLLINE
     Indication: PRODUCT USED FOR UNKNOWN INDICATION
     Dosage: THE DOSAGE 1-0-1
     Route: 065
  5. LORISTA (LOSARTAN POTASSIUM) [Concomitant]
     Indication: PRODUCT USED FOR UNKNOWN INDICATION
     Route: 065
  6. MEDROL [Concomitant]
     Active Substance: METHYLPREDNISOLONE
     Indication: PRODUCT USED FOR UNKNOWN INDICATION
     Dosage: 4 MG, QD
     Route: 065
  7. SPIRIVA RESPIMAT [Concomitant]
     Active Substance: TIOTROPIUM BROMIDE
     Indication: PRODUCT USED FOR UNKNOWN INDICATION
     Dosage: THE DOSAGE 1X2
     Route: 065
  8. NUCALA [Suspect]
     Active Substance: MEPOLIZUMAB
     Indication: ASTHMA
     Dosage: ONLY ADMINSTERED ONCE.
     Route: 058
     Dates: start: 20190129, end: 20190129
  9. SINGULAIR [Concomitant]
     Active Substance: MONTELUKAST SODIUM
     Indication: PRODUCT USED FOR UNKNOWN INDICATION
     Dosage: UNK, QD
     Route: 065
  10. ERDOMED [Concomitant]
     Active Substance: ERDOSTEINE
     Indication: PRODUCT USED FOR UNKNOWN INDICATION
     Dosage: 1-2X A DAY
     Route: 065
  11. FULLHALE [Concomitant]
     Indication: PRODUCT USED FOR UNKNOWN INDICATION
     Dosage: THE DOSAGE 2-0-2
     Route: 065

REACTIONS (6)
  - Swelling face [Recovered/Resolved]
  - Haematoma [Recovered/Resolved]
  - Petechiae [Recovered/Resolved]
  - Eyelid oedema [Recovered/Resolved]
  - Rash [Recovered/Resolved]
  - Pruritus generalised [Recovered/Resolved]

NARRATIVE: CASE EVENT DATE: 20190220
